FAERS Safety Report 20176520 (Version 1)
Quarter: 2021Q4

REPORT INFORMATION
  Report Type: Spontaneous
  Country: CA (occurrence: CA)
  Receive Date: 20211213
  Receipt Date: 20211213
  Transmission Date: 20220303
  Serious: Yes (Life-Threatening, Other)
  Sender: FDA-Public Use
  Company Number: CA-ALLERGAN-2141981US

PATIENT
  Sex: Female
  Weight: 78 kg

DRUGS (2)
  1. BOTOX [Suspect]
     Active Substance: ONABOTULINUMTOXINA
     Indication: Pain management
     Dosage: 100 UNITS, SINGLE
     Route: 030
  2. BUPIVACAINE HYDROCHLORIDE [Suspect]
     Active Substance: BUPIVACAINE HYDROCHLORIDE
     Indication: Pain management
     Dosage: 50 MG
     Route: 065

REACTIONS (5)
  - Respiratory arrest [Recovered/Resolved]
  - Aphonia [Recovered/Resolved]
  - Respiratory depression [Recovered/Resolved]
  - Hypotension [Recovered/Resolved]
  - Dysphonia [Recovered/Resolved]
